FAERS Safety Report 8476435-7 (Version None)
Quarter: 2012Q2

REPORT INFORMATION
  Report Type: 
  Country: None (occurrence: None)
  Receive Date: 20120615
  Receipt Date: 20120607
  Transmission Date: 20120825
  Serious: Yes (Other)
  Sender: FDA-Public Use
  Company Number: WAES 1205USA00026

PATIENT
  Age: 16 Year
  Sex: Female

DRUGS (17)
  1. DOXORUBICIN HCL [Suspect]
     Indication: BONE SARCOMA
     Dosage: 59 MG/DAILY IV
     Route: 042
     Dates: start: 20120417, end: 20120419
  2. CISPLATIN [Suspect]
     Indication: BONE SARCOMA
     Dosage: 63 MG/DAILY IV
     Route: 042
     Dates: start: 20120417, end: 20120420
  3. AMETOP [Concomitant]
  4. EMEND [Suspect]
     Indication: PROPHYLAXIS OF NAUSEA AND VOMITING
     Dosage: 125 MG/1X, PO, 80 MG/1X, PO, 80 MG/1X, PO
     Route: 048
     Dates: start: 20120418, end: 20120418
  5. EMEND [Suspect]
     Indication: PROPHYLAXIS OF NAUSEA AND VOMITING
     Dosage: 125 MG/1X, PO, 80 MG/1X, PO, 80 MG/1X, PO
     Route: 048
     Dates: start: 20120419, end: 20120419
  6. EMEND [Suspect]
     Indication: PROPHYLAXIS OF NAUSEA AND VOMITING
     Dosage: 125 MG/1X, PO, 80 MG/1X, PO, 80 MG/1X, PO
     Route: 048
     Dates: start: 20120417, end: 20120417
  7. LEVOMEPROMAZINE [Concomitant]
  8. ACETAMINOPHEN [Concomitant]
  9. DIHYDROCODEINE BITARTRATE INJ [Concomitant]
  10. ONDANSETRON [Suspect]
     Indication: PROPHYLAXIS OF NAUSEA AND VOMITING
     Dosage: 8 MG/BID PO, 8 MG/BID PO, 8 MG/BID PO, 15 ML/BID PO
     Route: 048
     Dates: start: 20120418, end: 20120420
  11. ONDANSETRON [Suspect]
     Indication: PROPHYLAXIS OF NAUSEA AND VOMITING
     Dosage: 8 MG/BID PO, 8 MG/BID PO, 8 MG/BID PO, 15 ML/BID PO
     Route: 048
     Dates: start: 20120417, end: 20120420
  12. ONDANSETRON [Suspect]
     Indication: PROPHYLAXIS OF NAUSEA AND VOMITING
     Dosage: 8 MG/BID PO, 8 MG/BID PO, 8 MG/BID PO, 15 ML/BID PO
     Route: 048
     Dates: start: 20120418, end: 20120420
  13. ONDANSETRON [Suspect]
     Indication: PROPHYLAXIS OF NAUSEA AND VOMITING
     Dosage: 8 MG/BID PO, 8 MG/BID PO, 8 MG/BID PO, 15 ML/BID PO
     Route: 048
     Dates: start: 20120417, end: 20120420
  14. METOCLOPRAMIDE [Concomitant]
  15. DEXAMETHASONE [Suspect]
     Indication: PROPHYLAXIS OF NAUSEA AND VOMITING
     Dosage: 12 ML IV, 5 ML/TID IV
     Route: 042
     Dates: start: 20120417, end: 20120417
  16. DEXAMETHASONE [Suspect]
     Indication: PROPHYLAXIS OF NAUSEA AND VOMITING
     Dosage: 12 ML IV, 5 ML/TID IV
     Route: 042
     Dates: start: 20120418, end: 20120420
  17. ONDANSETRON HYDROCHLORIDE [Concomitant]

REACTIONS (4)
  - SEDATION [None]
  - ELECTROCARDIOGRAM T WAVE INVERSION [None]
  - CONSTIPATION [None]
  - SINUS ARRHYTHMIA [None]
